FAERS Safety Report 4494259-2 (Version None)
Quarter: 2004Q4

REPORT INFORMATION
  Report Type: 
  Country: None (occurrence: None)
  Receive Date: 20041105
  Receipt Date: 20041103
  Transmission Date: 20050328
  Serious: Yes (Other)
  Sender: FDA-Public Use
  Company Number: PHBS2004CH14715

PATIENT
  Age: 45 Year
  Sex: Female

DRUGS (9)
  1. LEPONEX [Suspect]
     Indication: SCHIZOPHRENIA
     Dosage: 350 MG/D
     Route: 065
  2. RISPERDAL [Suspect]
     Indication: SCHIZOPHRENIA
     Dosage: 4 MG/D
     Route: 065
  3. TEGRETOL [Concomitant]
     Dosage: 450 MG/D
     Route: 065
  4. TEMESTA [Concomitant]
     Dosage: 6.5 MG/D
     Route: 065
  5. SEMAP [Concomitant]
     Dosage: 1 DF, QW2
     Route: 048
  6. ELTROXIN [Concomitant]
     Dosage: 0.05 MG/D
     Route: 065
  7. CALCIUM [Concomitant]
     Dosage: 1 TABLET/D
     Route: 048
  8. MAGNESIOCARD [Concomitant]
     Dosage: 10 MG/D
     Route: 065
  9. FLATULEX [Concomitant]
     Dosage: IF NEEDED
     Route: 065

REACTIONS (2)
  - DIABETES INSIPIDUS [None]
  - POLYDIPSIA [None]
